FAERS Safety Report 8442752-X (Version None)
Quarter: 2012Q2

REPORT INFORMATION
  Report Type: 
  Country: None (occurrence: None)
  Receive Date: 20120323
  Receipt Date: 20111019
  Transmission Date: 20120825
  Serious: Yes (Hospitalization)
  Sender: FDA-Public Use
  Company Number: 163-21880-11062183

PATIENT
  Age: 53 Year
  Sex: Female
  Weight: 74 kg

DRUGS (3)
  1. REVLIMID [Suspect]
     Indication: MULTIPLE MYELOMA
     Dosage: 25 MG, 1 IN 1 D, PO; 20-15MG, DAILY, PO; 20 MG, DAILY FOR 21 DAYS, PO
     Route: 048
     Dates: start: 20090601
  2. REVLIMID [Suspect]
     Indication: MULTIPLE MYELOMA
     Dosage: 25 MG, 1 IN 1 D, PO; 20-15MG, DAILY, PO; 20 MG, DAILY FOR 21 DAYS, PO
     Route: 048
     Dates: start: 20090801
  3. REVLIMID [Suspect]
     Indication: MULTIPLE MYELOMA
     Dosage: 25 MG, 1 IN 1 D, PO; 20-15MG, DAILY, PO; 20 MG, DAILY FOR 21 DAYS, PO
     Route: 048
     Dates: start: 20100301

REACTIONS (5)
  - CONTUSION [None]
  - SWELLING [None]
  - HIP FRACTURE [None]
  - HAEMOGLOBIN DECREASED [None]
  - PAIN [None]
